FAERS Safety Report 5064457-8 (Version None)
Quarter: 2006Q3

REPORT INFORMATION
  Report Type: 
  Country: None (occurrence: None)
  Receive Date: 20060728
  Receipt Date: 20060719
  Transmission Date: 20061208
  Serious: Yes (Life-Threatening, Hospitalization)
  Sender: FDA-Public Use
  Company Number: GB-JNJFOC-20060703982

PATIENT
  Age: 34 Year
  Sex: Male
  Weight: 100 kg

DRUGS (1)
  1. TRAMADOL HCL [Suspect]
     Indication: ABDOMINAL PAIN
     Route: 048

REACTIONS (2)
  - BLOOD POTASSIUM INCREASED [None]
  - RHABDOMYOLYSIS [None]
